FAERS Safety Report 13153866 (Version 2)
Quarter: 2017Q2

REPORT INFORMATION
  Report Type: Spontaneous
  Country: JP (occurrence: JP)
  Receive Date: 20170126
  Receipt Date: 20170425
  Transmission Date: 20170830
  Serious: Yes (Hospitalization, Other)
  Sender: FDA-Public Use
  Company Number: JP-BRISTOL-MYERS SQUIBB COMPANY-BMS-2017-005167

PATIENT
  Age: 61 Year
  Sex: Male

DRUGS (1)
  1. KENACORT-A [Suspect]
     Active Substance: TRIAMCINOLONE
     Indication: TENOSYNOVITIS
     Dosage: 1 ML, Q2WK
     Route: 014

REACTIONS (3)
  - Anaphylactic shock [Recovered/Resolved]
  - Kounis syndrome [Recovering/Resolving]
  - Road traffic accident [Unknown]
